FAERS Safety Report 19910523 (Version 1)
Quarter: 2021Q4

REPORT INFORMATION
  Report Type: Spontaneous
  Country: US (occurrence: US)
  Receive Date: 20211004
  Receipt Date: 20211004
  Transmission Date: 20220303
  Serious: Yes (Hospitalization)
  Sender: FDA-Public Use
  Company Number: US-JNJFOC-20210938687

PATIENT
  Age: 48 Year
  Sex: Female
  Weight: 48 kg

DRUGS (12)
  1. ACETAMINOPHEN [Suspect]
     Active Substance: ACETAMINOPHEN
     Indication: Toothache
     Dosage: ACCIDENTAL OVERDOSE OF 4000 MG OVER DURATION OF 7 DAYS ENDING ON 27-MAY-2002
     Route: 048
     Dates: end: 20020527
  2. ACETAMINOPHEN [Suspect]
     Active Substance: ACETAMINOPHEN
     Indication: Fibromyalgia
     Dosage: EVERY 6 HOURS
     Route: 048
     Dates: end: 20020527
  3. VICODIN [Suspect]
     Active Substance: ACETAMINOPHEN\HYDROCODONE BITARTRATE
     Indication: Toothache
     Dosage: 2000 MG PARACETAMOL AND 20 MG HYDROCODONE, TOTAL DAILY DOSE
     Route: 065
     Dates: end: 20020527
  4. VICODIN [Suspect]
     Active Substance: ACETAMINOPHEN\HYDROCODONE BITARTRATE
     Indication: Fibromyalgia
  5. DURAGESIC [Concomitant]
     Active Substance: FENTANYL
     Indication: Product used for unknown indication
     Dosage: 75 MCG/HOUR
     Route: 065
     Dates: end: 20020527
  6. ZOLOFT [Concomitant]
     Active Substance: SERTRALINE HYDROCHLORIDE
     Indication: Product used for unknown indication
     Route: 065
     Dates: end: 20020527
  7. TRAZODONE [Concomitant]
     Active Substance: TRAZODONE HYDROCHLORIDE
     Indication: Product used for unknown indication
     Route: 065
     Dates: end: 20020527
  8. POTASSIUM CHLORIDE [Concomitant]
     Active Substance: POTASSIUM CHLORIDE
     Indication: Product used for unknown indication
     Route: 065
     Dates: end: 20020527
  9. ALLEGRA-D [Concomitant]
     Active Substance: FEXOFENADINE HYDROCHLORIDE\PSEUDOEPHEDRINE HYDROCHLORIDE
     Indication: Product used for unknown indication
     Dosage: FEXOFENADINE HYDROCHLORIDE 120 MG AND PSEUDOEPHEDRINE HYDROCHLORIDE 240MG; DAILY/DURATION 12 MONTHS
     Route: 065
     Dates: end: 20020527
  10. FLAGYL [Concomitant]
     Active Substance: METRONIDAZOLE\METRONIDAZOLE HYDROCHLORIDE
     Indication: Product used for unknown indication
     Route: 065
     Dates: end: 20020527
  11. AMOXICILLIN [Concomitant]
     Active Substance: AMOXICILLIN
     Indication: Product used for unknown indication
     Route: 065
     Dates: end: 20020527
  12. MODURETIC 5-50 [Concomitant]
     Active Substance: AMILORIDE HYDROCHLORIDE\HYDROCHLOROTHIAZIDE
     Indication: Product used for unknown indication
     Dosage: AMILORIDE 20 MG AND HYDROCHLOROTHIAZIDE 12.5 MG; DAILY (DURATION 12 MONTHS)
     Route: 065
     Dates: end: 20020527

REACTIONS (25)
  - Acute kidney injury [Recovered/Resolved]
  - Acute hepatic failure [Recovered/Resolved]
  - Product administration error [Recovered/Resolved]
  - Blood pressure increased [Recovered/Resolved]
  - Mean arterial pressure increased [Recovered/Resolved]
  - Heart rate increased [Recovered/Resolved]
  - Respiratory rate increased [Recovered/Resolved]
  - Body temperature increased [Recovered/Resolved]
  - White blood cell count increased [Recovered/Resolved]
  - Neutrophil percentage increased [Recovered/Resolved]
  - Lymphocyte percentage decreased [Recovered/Resolved]
  - Eosinophil percentage decreased [Recovered/Resolved]
  - Monocyte percentage decreased [Recovered/Resolved]
  - Blood pH increased [Recovered/Resolved]
  - PO2 increased [Recovered/Resolved]
  - PCO2 decreased [Recovered/Resolved]
  - Hepatitis B surface antibody positive [Recovered/Resolved]
  - Alpha 1 foetoprotein decreased [Recovered/Resolved]
  - Supraventricular tachycardia [Recovered/Resolved]
  - Pulmonary oedema [Recovered/Resolved]
  - Hepatic steatosis [Recovered/Resolved]
  - Blood iron increased [Recovered/Resolved]
  - Transferrin decreased [Recovered/Resolved]
  - Blood thyroid stimulating hormone decreased [Recovered/Resolved]
  - Accidental overdose [Recovered/Resolved]

NARRATIVE: CASE EVENT DATE: 20020501
